FAERS Safety Report 7687570-5 (Version None)
Quarter: 2011Q3

REPORT INFORMATION
  Report Type: 
  Country: None (occurrence: None)
  Receive Date: 20110811
  Receipt Date: 20110729
  Transmission Date: 20111222
  Serious: Yes (Other)
  Sender: FDA-Public Use
  Company Number: MSTR-NO-1108S-0200

PATIENT
  Age: 55 Year
  Sex: Male
  Weight: 78 kg

DRUGS (4)
  1. METASTRON [Suspect]
     Indication: METASTATIC PAIN
     Dosage: SINGLE DOSE, INTRAVENOUS  ; SINGLE DOSE, INTRAVENOUS
     Route: 042
     Dates: start: 20090113, end: 20090113
  2. METASTRON [Suspect]
     Indication: METASTATIC PAIN
     Dosage: SINGLE DOSE, INTRAVENOUS  ; SINGLE DOSE, INTRAVENOUS
     Route: 042
     Dates: start: 20090604, end: 20090604
  3. FENTANYL [Concomitant]
  4. MORPHINE HYDROCHLORIDE (MORPHINE HYDROCHLORIDE) [Concomitant]

REACTIONS (3)
  - PROSTATE CANCER [None]
  - NEOPLASM PROGRESSION [None]
  - ANAEMIA [None]
